FAERS Safety Report 6296908-5 (Version None)
Quarter: 2009Q3

REPORT INFORMATION
  Report Type: 
  Country: None (occurrence: None)
  Receive Date: 20090804
  Receipt Date: 20090730
  Transmission Date: 20100115
  Serious: Yes (Life-Threatening, Other)
  Sender: FDA-Public Use
  Company Number: DE-ABBOTT-09P-062-0580612-00

PATIENT
  Sex: Male

DRUGS (1)
  1. ERGENYL CHRONOSPHERE [Suspect]
     Indication: EPILEPSY
     Dosage: GRANULE
     Route: 048
     Dates: start: 20090301

REACTIONS (3)
  - DRUG INEFFECTIVE [None]
  - EPILEPSY [None]
  - PRODUCT QUALITY ISSUE [None]
